FAERS Safety Report 18012967 (Version 1)
Quarter: 2020Q3

REPORT INFORMATION
  Report Type: Spontaneous
  Country: US (occurrence: US)
  Receive Date: 20200710
  Receipt Date: 20200710
  Transmission Date: 20201103
  Serious: Yes (Hospitalization)
  Sender: FDA-Public Use
  Company Number: None

PATIENT
  Sex: Male

DRUGS (11)
  1. XTANDI [Concomitant]
     Active Substance: ENZALUTAMIDE
  2. BILBERRY [Suspect]
     Active Substance: BILBERRY
  3. LUPRON DEPORT [Concomitant]
  4. METAMUCIL [Suspect]
     Active Substance: PLANTAGO SEED
  5. ELIGARD [Suspect]
     Active Substance: LEUPROLIDE ACETATE
     Indication: PROSTATE CANCER
     Dosage: ?          OTHER FREQUENCY:Q 6 MONTHS;?
     Route: 058
     Dates: start: 20180623
  6. SIMIVASTATIN [Concomitant]
  7. METOPROL SUC [Concomitant]
  8. ELIQUIS [Suspect]
     Active Substance: APIXABAN
  9. TAMSULOSIN [Concomitant]
     Active Substance: TAMSULOSIN
  10. TYLENOL [Concomitant]
     Active Substance: ACETAMINOPHEN
  11. VENAFAXALINE [Concomitant]

REACTIONS (1)
  - Hospitalisation [None]
